FAERS Safety Report 10168426 (Version 1)
Quarter: 2014Q2

REPORT INFORMATION
  Report Type: Spontaneous
  Country: CA (occurrence: CA)
  Receive Date: 20140513
  Receipt Date: 20140513
  Transmission Date: 20141212
  Serious: Yes (Hospitalization, Other)
  Sender: FDA-Public Use
  Company Number: CA-AMGEN-CANSP2014033392

PATIENT
  Age: 87 Year
  Sex: Female

DRUGS (2)
  1. PROLIA [Suspect]
     Indication: PRODUCT USED FOR UNKNOWN INDICATION
     Dosage: 60 MG, Q6MO
     Route: 058
     Dates: start: 20130423
  2. GLUCERNA                           /07499801/ [Concomitant]
     Indication: APPETITE DISORDER

REACTIONS (3)
  - Transient ischaemic attack [Unknown]
  - Muscular weakness [Recovered/Resolved]
  - Fall [Recovered/Resolved]
